FAERS Safety Report 4745244-4 (Version None)
Quarter: 2005Q3

REPORT INFORMATION
  Report Type: 
  Country: None (occurrence: None)
  Receive Date: 20050815
  Receipt Date: 20050722
  Transmission Date: 20060218
  Serious: Yes (Other)
  Sender: FDA-Public Use
  Company Number: PHFR2005GB02547

PATIENT
  Sex: Male

DRUGS (1)
  1. ZOMETA [Suspect]
     Indication: MULTIPLE MYELOMA
     Dosage: 4MG
     Route: 042
     Dates: start: 20031001

REACTIONS (5)
  - ASEPTIC NECROSIS BONE [None]
  - BREATH ODOUR [None]
  - GINGIVAL PAIN [None]
  - OSTEONECROSIS [None]
  - TOOTH EXTRACTION [None]
